FAERS Safety Report 8532529 (Version 3)
Quarter: 2013Q2

REPORT INFORMATION
  Report Type: Spontaneous
  Country: US (occurrence: US)
  Receive Date: 20120426
  Receipt Date: 20130422
  Transmission Date: 20140414
  Serious: Yes (Hospitalization, Other)
  Sender: FDA-Public Use
  Company Number: US-PFIZER INC-2012099881

PATIENT
  Age: 47 Year
  Sex: Female

DRUGS (6)
  1. EFFEXOR XR [Suspect]
     Indication: MENTAL DISORDER
     Dosage: UNK
  2. EFFEXOR [Suspect]
     Indication: DEPRESSION
     Dosage: 150MG DAILY
  3. LITHIUM [Suspect]
     Indication: BIPOLAR DISORDER
     Dosage: 300MG IN MORNING AND TWO TABLETS OF 300MG IN NIGHT
  4. LITHIUM [Suspect]
     Indication: ANXIETY
     Dosage: 600 MG, 2X/DAY
  5. LITHIUM [Suspect]
     Indication: DEPRESSION
     Dosage: UNK
  6. XANAX [Concomitant]
     Indication: ANXIETY
     Dosage: UNK, 3X/DAY

REACTIONS (6)
  - Road traffic accident [Unknown]
  - Limb injury [Unknown]
  - Endometriosis [Unknown]
  - Fall [Unknown]
  - Hot flush [Unknown]
  - Emotional disorder [Unknown]
